FAERS Safety Report 15291108 (Version 3)
Quarter: 2020Q4

REPORT INFORMATION
  Report Type: Spontaneous
  Country: US (occurrence: US)
  Receive Date: 20180817
  Receipt Date: 20201228
  Transmission Date: 20210113
  Serious: Yes (Hospitalization)
  Sender: FDA-Public Use
  Company Number: US-VIFOR (INTERNATIONAL) INC.-VIT-2018-07978

PATIENT
  Age: 49 Year
  Sex: Female

DRUGS (8)
  1. VELTASSA [Suspect]
     Active Substance: PATIROMER
     Indication: HYPERKALAEMIA
     Dosage: 1 PACKET ON TUESDAY, THURSDAY AND 2 PACKETS SATURDAY, SUNDAY
     Route: 048
     Dates: start: 20180323
  2. DIALYVITE 800 [Concomitant]
  3. METOPROLOL TARTRATE. [Concomitant]
     Active Substance: METOPROLOL TARTRATE
  4. PHOSLO [Concomitant]
     Active Substance: CALCIUM ACETATE
  5. DILTIAZEM CD [Concomitant]
     Active Substance: DILTIAZEM
  6. PRAVASTATIN SODIUM. [Concomitant]
     Active Substance: PRAVASTATIN SODIUM
  7. RANITIDINE HCL [Concomitant]
     Active Substance: RANITIDINE HYDROCHLORIDE
  8. RENVELA [Concomitant]
     Active Substance: SEVELAMER CARBONATE

REACTIONS (6)
  - Chest pain [Unknown]
  - Hypertension [Unknown]
  - Inappropriate schedule of product administration [Unknown]
  - Hospitalisation [Unknown]
  - Sinusitis [Unknown]
  - Dyspnoea [Unknown]

NARRATIVE: CASE EVENT DATE: 2018
